FAERS Safety Report 9104133 (Version 1)
Quarter: 2013Q1

REPORT INFORMATION
  Report Type: Report from Study
  Country: CA (occurrence: CA)
  Receive Date: 20130219
  Receipt Date: 20130219
  Transmission Date: 20140127
  Serious: Yes (Other)
  Sender: FDA-Public Use
  Company Number: CA-ROCHE-1192321

PATIENT
  Age: 44 Year
  Sex: 0

DRUGS (8)
  1. AVASTIN [Suspect]
     Indication: COLORECTAL CANCER
     Route: 065
     Dates: start: 201201, end: 201208
  2. AVASTIN [Suspect]
     Route: 065
     Dates: start: 201208, end: 201212
  3. FOLINIC ACID [Suspect]
     Indication: COLORECTAL CANCER
     Route: 065
     Dates: start: 201201, end: 201208
  4. FOLINIC ACID [Suspect]
     Route: 065
     Dates: start: 201208, end: 201212
  5. IRINOTECAN [Suspect]
     Indication: COLORECTAL CANCER
     Route: 065
     Dates: start: 201208, end: 201212
  6. FLUOROURACIL [Suspect]
     Indication: COLORECTAL CANCER
     Route: 065
     Dates: start: 201201, end: 201208
  7. FLUOROURACIL [Suspect]
     Route: 065
     Dates: start: 201208, end: 201212
  8. OXALIPLATIN [Suspect]
     Indication: COLORECTAL CANCER
     Route: 065
     Dates: start: 201201, end: 201208

REACTIONS (1)
  - Disease progression [Unknown]
